FAERS Safety Report 21844510 (Version 8)
Quarter: 2024Q2

REPORT INFORMATION
  Report Type: Spontaneous
  Country: US (occurrence: US)
  Receive Date: 20230110
  Receipt Date: 20240520
  Transmission Date: 20240715
  Serious: No
  Sender: FDA-Public Use
  Company Number: US-BoehringerIngelheim-2023-BI-211710

PATIENT
  Age: 78 Year
  Sex: Female

DRUGS (7)
  1. STIOLTO RESPIMAT [Suspect]
     Active Substance: OLODATEROL HYDROCHLORIDE\TIOTROPIUM BROMIDE MONOHYDRATE
     Indication: Chronic obstructive pulmonary disease
     Dosage: 1 OR 2 PUFFS EVERY DAY
     Dates: start: 202301
  2. STIOLTO RESPIMAT [Suspect]
     Active Substance: OLODATEROL HYDROCHLORIDE\TIOTROPIUM BROMIDE MONOHYDRATE
     Dosage: 1 PUFFS PER DAY, FOA: INHALATION SPRAY
     Dates: start: 202212
  3. STIOLTO RESPIMAT [Suspect]
     Active Substance: OLODATEROL HYDROCHLORIDE\TIOTROPIUM BROMIDE MONOHYDRATE
     Dosage: 2 PUFFS PER DAY, FOA: INHALATION SPRAY
     Dates: start: 20221223
  4. CRESTOR [Concomitant]
     Active Substance: ROSUVASTATIN CALCIUM
     Indication: Blood cholesterol increased
     Dates: start: 2023, end: 2024
  5. OLMESARTAN [Concomitant]
     Active Substance: OLMESARTAN
     Indication: Hypertension
     Dosage: 10 MG PO QD
     Route: 048
     Dates: start: 2022
  6. ADVAIR HFA [Concomitant]
     Active Substance: FLUTICASONE PROPIONATE\SALMETEROL XINAFOATE
     Indication: Product used for unknown indication
  7. ALBUTEROL [Concomitant]
     Active Substance: ALBUTEROL
     Indication: Drug therapy

REACTIONS (21)
  - Abdominal distension [Recovering/Resolving]
  - Nervousness [Recovering/Resolving]
  - Blood pressure increased [Not Recovered/Not Resolved]
  - Heart rate increased [Recovering/Resolving]
  - Dry eye [Not Recovered/Not Resolved]
  - Bladder irritation [Not Recovered/Not Resolved]
  - Thirst [Not Recovered/Not Resolved]
  - Dysuria [Not Recovered/Not Resolved]
  - Ocular hyperaemia [Not Recovered/Not Resolved]
  - Heart rate increased [Not Recovered/Not Resolved]
  - Pollakiuria [Not Recovered/Not Resolved]
  - Intentional product misuse [Unknown]
  - COVID-19 [Recovered/Resolved]
  - Pain in extremity [Recovered/Resolved]
  - Back pain [Not Recovered/Not Resolved]
  - Muscle spasms [Not Recovered/Not Resolved]
  - Feeling hot [Recovered/Resolved]
  - Hypoaesthesia [Not Recovered/Not Resolved]
  - Muscle spasms [Not Recovered/Not Resolved]
  - Halo vision [Not Recovered/Not Resolved]
  - Paraesthesia [Not Recovered/Not Resolved]

NARRATIVE: CASE EVENT DATE: 20221201
